FAERS Safety Report 11106760 (Version 1)
Quarter: 2015Q2

REPORT INFORMATION
  Report Type: Spontaneous
  Country: US (occurrence: None)
  Receive Date: 20150511
  Receipt Date: 20150511
  Transmission Date: 20150821
  Serious: Yes (Hospitalization)
  Sender: FDA-Public Use
  Company Number: None

PATIENT
  Age: 59 Year
  Sex: Female

DRUGS (2)
  1. SOVALDI [Suspect]
     Active Substance: SOFOSBUVIR
     Indication: HEPATITIS C
     Route: 048
     Dates: start: 20150327
  2. SOVALDI [Suspect]
     Active Substance: SOFOSBUVIR
     Indication: LIVER TRANSPLANT
     Route: 048
     Dates: start: 20150327

REACTIONS (2)
  - Feeling abnormal [None]
  - Anaemia [None]

NARRATIVE: CASE EVENT DATE: 20150415
